FAERS Safety Report 6460377-2 (Version None)
Quarter: 2009Q4

REPORT INFORMATION
  Report Type: 
  Country: None (occurrence: None)
  Receive Date: 20091130
  Receipt Date: 20091119
  Transmission Date: 20100525
  Serious: Yes (Hospitalization)
  Sender: FDA-Public Use
  Company Number: US-JNJFOC-20091106057

PATIENT
  Sex: Female
  Weight: 63.5 kg

DRUGS (11)
  1. REMICADE [Suspect]
     Route: 042
     Dates: start: 20090407, end: 20090914
  2. REMICADE [Suspect]
     Route: 042
     Dates: start: 20090407, end: 20090914
  3. REMICADE [Suspect]
     Route: 042
     Dates: start: 20090407, end: 20090914
  4. REMICADE [Suspect]
     Route: 042
     Dates: start: 20090407, end: 20090914
  5. REMICADE [Suspect]
     Indication: ARTHRITIS
     Route: 042
     Dates: start: 20090407, end: 20090914
  6. METHOTREXATE [Concomitant]
     Indication: ARTHRITIS
     Dosage: 2 YEARS
  7. FOLIC ACID [Concomitant]
     Indication: PROPHYLAXIS
  8. PREDNISONE TAB [Concomitant]
     Indication: ARTHRITIS
  9. VITAMIN D [Concomitant]
     Indication: VITAMIN D DEFICIENCY
  10. ISONIAZID [Concomitant]
     Indication: TUBERCULOSIS
  11. PLAQUENIL [Concomitant]
     Indication: ARTHRITIS

REACTIONS (2)
  - ARTHRALGIA [None]
  - ROAD TRAFFIC ACCIDENT [None]
